FAERS Safety Report 6094060-2 (Version None)
Quarter: 2009Q1

REPORT INFORMATION
  Report Type: 
  Country: None (occurrence: None)
  Receive Date: 20090226
  Receipt Date: 20090220
  Transmission Date: 20090719
  Serious: No
  Sender: FDA-Public Use
  Company Number: US-JNJFOC-20090205648

PATIENT
  Sex: Male
  Weight: 113.4 kg

DRUGS (1)
  1. DURAGESIC-100 [Suspect]
     Indication: PULMONARY ARTERIAL HYPERTENSION
     Route: 062

REACTIONS (5)
  - CONSTIPATION [None]
  - DRUG DOSE OMISSION [None]
  - OFF LABEL USE [None]
  - PAIN [None]
  - SKIN ULCER [None]
